FAERS Safety Report 6384459-9 (Version None)
Quarter: 2009Q4

REPORT INFORMATION
  Report Type: 
  Country: None (occurrence: None)
  Receive Date: 20091001
  Receipt Date: 20090923
  Transmission Date: 20100525
  Serious: Yes (Hospitalization, Other)
  Sender: FDA-Public Use
  Company Number: NL-B.I. PHARMACEUTICALS,INC./RIDGEFIELD-2009-NL-00582NL

PATIENT
  Sex: Female

DRUGS (3)
  1. ATROVENT [Suspect]
  2. PREDNISON [Concomitant]
  3. SPIRIVA [Concomitant]
     Dates: start: 20090901

REACTIONS (4)
  - ANXIETY DISORDER [None]
  - CARDIAC DISORDER [None]
  - CEREBRAL HAEMORRHAGE [None]
  - DRUG DEPENDENCE [None]
